FAERS Safety Report 20146793 (Version 4)
Quarter: 2022Q2

REPORT INFORMATION
  Report Type: Report from Study
  Country: US (occurrence: US)
  Receive Date: 20211203
  Receipt Date: 20220425
  Transmission Date: 20220720
  Serious: Yes (Death)
  Sender: FDA-Public Use
  Company Number: US-BAUSCH-BL-2021-040180

PATIENT
  Age: 78 Year
  Sex: Female

DRUGS (1)
  1. TRULANCE [Suspect]
     Active Substance: PLECANATIDE
     Indication: Constipation
     Route: 048
     Dates: start: 2021

REACTIONS (3)
  - Breast cancer metastatic [Fatal]
  - Renal disorder [Fatal]
  - Blood pressure abnormal [Fatal]

NARRATIVE: CASE EVENT DATE: 20211108
